FAERS Safety Report 9365990 (Version 2)
Quarter: 2013Q2

REPORT INFORMATION
  Report Type: Spontaneous
  Country: AU (occurrence: GB)
  Receive Date: 20130625
  Receipt Date: 20130625
  Transmission Date: 20140414
  Serious: Yes (Other)
  Sender: FDA-Public Use
  Company Number: AU-ASTRAZENECA-2013SE14551

PATIENT
  Sex: Female

DRUGS (6)
  1. CITANEST [Suspect]
     Route: 065
  2. LIDOCAINE/LIGNOCAINE [Interacting]
     Indication: DENTAL CARE
     Dosage: BRAND UNKNOWN
     Dates: start: 1996
  3. LIDOCAINE/LIGNOCAINE [Interacting]
     Indication: FACIAL OPERATION
     Dosage: BRAND UNKNOWN
     Dates: start: 1996
  4. LIDOCAINE/LIGNOCAINE [Interacting]
     Indication: DENTAL CARE
     Dosage: BRAND UNKNOWN
     Dates: start: 2008
  5. LIDOCAINE/LIGNOCAINE [Interacting]
     Indication: FACIAL OPERATION
     Dosage: BRAND UNKNOWN
     Dates: start: 2008
  6. LITHIUM [Interacting]
     Dates: start: 2001

REACTIONS (17)
  - Drug interaction [Unknown]
  - Overdose [Unknown]
  - Brain injury [Unknown]
  - Loss of consciousness [Unknown]
  - Malaise [Unknown]
  - Amnesia [Unknown]
  - Psychotic disorder [Unknown]
  - Dizziness [Unknown]
  - Hypertension [Unknown]
  - Headache [Unknown]
  - Feeling abnormal [Unknown]
  - Toxicity to various agents [Unknown]
  - Trance [Unknown]
  - Mania [Unknown]
  - Hallucination, visual [Unknown]
  - Cerebral atrophy [Unknown]
  - Drug hypersensitivity [Unknown]
